FAERS Safety Report 14216289 (Version 1)
Quarter: 2017Q4

REPORT INFORMATION
  Report Type: Report from Study
  Country: US (occurrence: US)
  Receive Date: 20171122
  Receipt Date: 20171122
  Transmission Date: 20180321
  Serious: Yes (Other)
  Sender: FDA-Public Use
  Company Number: US-PFIZER INC-2017495201

PATIENT
  Age: 52 Year
  Sex: Female
  Weight: 74.83 kg

DRUGS (9)
  1. DULOXETINE. [Concomitant]
     Active Substance: DULOXETINE
     Indication: ANXIETY
     Dosage: 20 MG, UNK
     Dates: start: 201709
  2. HUMIRA [Suspect]
     Active Substance: ADALIMUMAB
     Indication: ANKYLOSING SPONDYLITIS
     Dosage: 40MG/0.8ML (40 MILLIGRAM, SOLUTION FOR INJECTION IN PRE-FILLED PEN) 1 IN 2 WEEKS
     Route: 058
     Dates: start: 201609
  3. MIRTAZAPINE. [Concomitant]
     Active Substance: MIRTAZAPINE
     Indication: ANXIETY
     Dosage: UNK
     Dates: start: 201709
  4. MIRTAZAPINE. [Concomitant]
     Active Substance: MIRTAZAPINE
     Indication: STRESS
  5. DULOXETINE. [Concomitant]
     Active Substance: DULOXETINE
     Indication: STRESS
  6. LYRICA [Suspect]
     Active Substance: PREGABALIN
     Indication: FIBROMYALGIA
     Dosage: UNK
     Dates: start: 201609
  7. TRAMADOL. [Concomitant]
     Active Substance: TRAMADOL
     Indication: PAIN
     Dosage: UNK
  8. MIRTAZAPINE. [Concomitant]
     Active Substance: MIRTAZAPINE
     Indication: PAIN
  9. DULOXETINE. [Concomitant]
     Active Substance: DULOXETINE
     Indication: PAIN

REACTIONS (15)
  - Arthralgia [Unknown]
  - Confusional state [Recovered/Resolved]
  - Micturition urgency [Unknown]
  - Musculoskeletal pain [Unknown]
  - Vomiting [Not Recovered/Not Resolved]
  - Urinary incontinence [Unknown]
  - Headache [Not Recovered/Not Resolved]
  - Peripheral swelling [Recovered/Resolved]
  - Weight increased [Not Recovered/Not Resolved]
  - Pain [Not Recovered/Not Resolved]
  - Diarrhoea [Not Recovered/Not Resolved]
  - Joint swelling [Unknown]
  - Loss of consciousness [Recovering/Resolving]
  - Disorientation [Recovered/Resolved]
  - Memory impairment [Not Recovered/Not Resolved]

NARRATIVE: CASE EVENT DATE: 2016
